FAERS Safety Report 9386642 (Version 1)
Quarter: 2013Q3

REPORT INFORMATION
  Report Type: Spontaneous
  Country: US (occurrence: None)
  Receive Date: 20130703
  Receipt Date: 20130703
  Transmission Date: 20140515
  Serious: Yes (Hospitalization)
  Sender: FDA-Public Use
  Company Number: None

PATIENT
  Age: 36 Year
  Sex: Male
  Weight: 39 kg

DRUGS (9)
  1. MELOXICAM [Suspect]
     Indication: PAIN
     Route: 048
  2. ACETAMINOPHEN [Concomitant]
  3. AMITRIPTYLINE [Concomitant]
  4. BACLOFEN [Concomitant]
  5. GABAPENTIN [Concomitant]
  6. LISINOPRIL [Concomitant]
  7. MIRTAZAPINE [Concomitant]
  8. ONDANSETRON [Concomitant]
  9. ROSUVASTATIN [Concomitant]

REACTIONS (3)
  - Haematemesis [None]
  - Gastrooesophageal reflux disease [None]
  - Gastric mucosa erythema [None]
